FAERS Safety Report 13558966 (Version 1)
Quarter: 2017Q2

REPORT INFORMATION
  Report Type: Spontaneous
  Country: US (occurrence: US)
  Receive Date: 20170518
  Receipt Date: 20170518
  Transmission Date: 20170830
  Serious: Yes (Hospitalization, Other)
  Sender: FDA-Public Use
  Company Number: US-WARNER_CHILCOTT-CIP11001276

PATIENT
  Age: 76 Year
  Sex: Female

DRUGS (17)
  1. DIDRONEL [Suspect]
     Active Substance: ETIDRONATE DISODIUM
     Indication: OSTEOPOROSIS POSTMENOPAUSAL
     Dosage: 200 MG TWICE DAILY TIMES 2 WEEKS Q 10 WEEKS
     Route: 048
     Dates: start: 19931221, end: 19951227
  2. DIDRONEL [Suspect]
     Active Substance: ETIDRONATE DISODIUM
     Indication: OSTEOPENIA
  3. FOSAMAX [Suspect]
     Active Substance: ALENDRONATE SODIUM
     Indication: OSTEOPENIA
     Dosage: 10 MG DAILY
     Route: 048
     Dates: start: 199601, end: 20010525
  4. BONIVA [Suspect]
     Active Substance: IBANDRONATE SODIUM
     Indication: OSTEOPOROSIS
     Dosage: 150 MG ONCE MONTHLY
     Route: 048
     Dates: start: 20051229, end: 200904
  5. BONIVA [Suspect]
     Active Substance: IBANDRONATE SODIUM
     Indication: OSTEOPENIA
  6. CEPHALEXIN                         /00145501/ [Concomitant]
     Active Substance: CEPHALEXIN
  7. ACTONEL [Suspect]
     Active Substance: RISEDRONATE SODIUM
     Indication: OSTEOPENIA
  8. BONIVA [Suspect]
     Active Substance: IBANDRONATE SODIUM
     Indication: OSTEOPENIA
  9. COZAAR [Concomitant]
     Active Substance: LOSARTAN POTASSIUM
  10. ARTHROTEC                          /00372302/ [Concomitant]
  11. ACYCLOVIR                          /00587301/ [Concomitant]
     Active Substance: ACYCLOVIR
  12. LIDODERM [Concomitant]
     Active Substance: LIDOCAINE
     Dosage: 5 % PATCH
     Route: 062
  13. VITAMIN D [Concomitant]
     Active Substance: CHOLECALCIFEROL
  14. HYDROCODONE BITARTRATE AND ACETAMINOPHEN [Concomitant]
     Active Substance: ACETAMINOPHEN\HYDROCODONE BITARTRATE
  15. CALCIUM [Concomitant]
     Active Substance: CALCIUM
  16. ACTONEL [Suspect]
     Active Substance: RISEDRONATE SODIUM
     Indication: OSTEOPOROSIS POSTMENOPAUSAL
     Dosage: 35 MG ONCE WEEKLY
     Route: 048
     Dates: start: 20021030, end: 2005
  17. FOSAMAX [Suspect]
     Active Substance: ALENDRONATE SODIUM
     Indication: OSTEOPOROSIS POSTMENOPAUSAL
     Dosage: 70 MG WEEKLY
     Route: 048
     Dates: start: 20010525, end: 200207

REACTIONS (18)
  - Low turnover osteopathy [Unknown]
  - Pain in extremity [Recovered/Resolved]
  - Abdominal discomfort [Recovered/Resolved]
  - Muscular weakness [Unknown]
  - Scar [Unknown]
  - Depression [Unknown]
  - Fracture displacement [Recovered/Resolved]
  - Pain [Unknown]
  - Oedema peripheral [Unknown]
  - Stress fracture [Unknown]
  - Fall [Recovered/Resolved]
  - Fracture delayed union [Unknown]
  - Fracture displacement [Unknown]
  - Gait disturbance [Unknown]
  - Femur fracture [Unknown]
  - Haematoma [Unknown]
  - Anxiety [Unknown]
  - Femur fracture [Recovered/Resolved]

NARRATIVE: CASE EVENT DATE: 2002
